FAERS Safety Report 17297237 (Version 1)
Quarter: 2020Q1

REPORT INFORMATION
  Report Type: Other
  Country: CA (occurrence: CA)
  Receive Date: 20200122
  Receipt Date: 20200122
  Transmission Date: 20200409
  Serious: Yes (Hospitalization, Other)
  Sender: FDA-Public Use
  Company Number: CA-LUPIN HEALTHCARE (UK) LIMITED-2020-00220

PATIENT
  Age: 61 Year
  Sex: Female

DRUGS (3)
  1. VALTREX [Suspect]
     Active Substance: VALACYCLOVIR HYDROCHLORIDE
     Indication: INFECTION
     Dosage: UNK
     Route: 065
  2. CEPHALEXIN. [Suspect]
     Active Substance: CEPHALEXIN
     Indication: INFECTION
     Dosage: UNK
     Route: 065
  3. ACYCLOVIR [ACICLOVIR SODIUM] [Suspect]
     Active Substance: ACYCLOVIR
     Indication: INFECTION
     Dosage: UNK
     Route: 042

REACTIONS (4)
  - Paralysis [Recovered/Resolved]
  - Aphasia [Recovered/Resolved]
  - Seizure like phenomena [Recovered/Resolved]
  - Muscle contractions involuntary [Recovered/Resolved]
